FAERS Safety Report 19765445 (Version 3)
Quarter: 2022Q2

REPORT INFORMATION
  Report Type: Report from Study
  Country: BE (occurrence: BE)
  Receive Date: 20210830
  Receipt Date: 20220404
  Transmission Date: 20220720
  Serious: Yes (Life-Threatening, Hospitalization)
  Sender: FDA-Public Use
  Company Number: BE-PFIZER INC-202101098072

PATIENT
  Age: 72 Year
  Sex: Male
  Weight: 71.9 kg

DRUGS (31)
  1. DOXORUBICIN HYDROCHLORIDE [Suspect]
     Active Substance: DOXORUBICIN HYDROCHLORIDE
     Indication: Diffuse large B-cell lymphoma stage IV
     Dosage: 50 MG/M2, 1Q3W, SOLUTION FOR INJECTION
     Route: 042
     Dates: start: 20210803
  2. DOXORUBICIN HYDROCHLORIDE [Suspect]
     Active Substance: DOXORUBICIN HYDROCHLORIDE
     Dosage: 750 MG/M2, 1 Q3W
     Route: 042
     Dates: start: 20210803
  3. CYCLOPHOSPHAMIDE [Suspect]
     Active Substance: CYCLOPHOSPHAMIDE
     Indication: Diffuse large B-cell lymphoma stage IV
     Dosage: 750 MG/M2, 1 Q3W, POWDER FOR SOLUTION FOR INJECTION
     Route: 042
     Dates: start: 20210803
  4. VINCRISTINE [Suspect]
     Active Substance: VINCRISTINE
     Indication: Diffuse large B-cell lymphoma stage IV
     Dosage: 1.4 MG/M2, 1Q3W, SOLUTION FOR INJECTION
     Route: 042
     Dates: start: 20210803
  5. EPCORITAMAB [Suspect]
     Active Substance: EPCORITAMAB
     Indication: Diffuse large B-cell lymphoma stage IV
     Dosage: PRIMING DOSE: 0.16 MG, SINGLE, DUOBODY-CD3XCD20, CONCENTRATE FOR SOLUTION FOR INJECTION
     Route: 058
     Dates: start: 20210803, end: 20210803
  6. EPCORITAMAB [Suspect]
     Active Substance: EPCORITAMAB
     Dosage: INTERMEDIATE DOSE: 0.8 MG, SINGLE, DUOBODY-CD3XCD20, CONCENTRATE FOR SOLUTION FOR INJECTION
     Route: 058
     Dates: start: 20210810, end: 20210810
  7. EPCORITAMAB [Suspect]
     Active Substance: EPCORITAMAB
     Dosage: FULL DOSE: 48 MG, WEEKLY, DUOBODY-CD3XCD20, CONCENTRATE FOR SOLUTION FOR INJECTION
     Route: 058
     Dates: start: 20210819
  8. RITUXIMAB [Suspect]
     Active Substance: RITUXIMAB
     Indication: Diffuse large B-cell lymphoma stage IV
     Dosage: 375 MG/M2, 1Q3W, CONCENTRATE FOR SOLUTION FOR INJECTION
     Route: 042
     Dates: start: 20210803
  9. PREDNISONE [Suspect]
     Active Substance: PREDNISONE
     Dosage: 80 MG, DAILY
     Route: 048
     Dates: start: 20210803, end: 20210803
  10. LEVOCETIRIZINE [Concomitant]
     Active Substance: LEVOCETIRIZINE
     Dosage: 5 MG
     Route: 048
     Dates: start: 20210810, end: 20210810
  11. LEVOCETIRIZINE [Concomitant]
     Active Substance: LEVOCETIRIZINE
     Dosage: 5 MG
     Dates: start: 20210810, end: 20210819
  12. LEVOCETIRIZINE [Concomitant]
     Active Substance: LEVOCETIRIZINE
     Dosage: UNK
     Dates: start: 20210817, end: 20210817
  13. ACETAMINOPHEN [Concomitant]
     Active Substance: ACETAMINOPHEN
     Dosage: 1 G
     Route: 048
     Dates: start: 20210810, end: 20210819
  14. SOLU-MEDROL [Concomitant]
     Active Substance: METHYLPREDNISOLONE SODIUM SUCCINATE
     Dosage: UNK
     Dates: start: 20210729, end: 20210802
  15. PALONOSETRON [Concomitant]
     Active Substance: PALONOSETRON
     Dosage: UNK
     Dates: start: 20210803, end: 20210803
  16. METHYLPREDNISOLONE [Concomitant]
     Active Substance: METHYLPREDNISOLONE
     Dosage: 80 MG
     Route: 048
     Dates: start: 20210810, end: 20210821
  17. METHYLPREDNISOLONE [Concomitant]
     Active Substance: METHYLPREDNISOLONE
     Dosage: UNK
     Dates: start: 20210729, end: 20210818
  18. FENOFIBRATE [Concomitant]
     Active Substance: FENOFIBRATE
     Dosage: UNK
     Dates: start: 2021
  19. BEFACT [CYANOCOBALAMIN;PYRIDOXINE;THIAMINE] [Concomitant]
     Dosage: UNK
  20. ESOMEPRAZOLE SODIUM [Concomitant]
     Active Substance: ESOMEPRAZOLE SODIUM
     Dosage: UNK
     Dates: start: 20210821
  21. FASTURTEC [Concomitant]
     Active Substance: RASBURICASE
     Dosage: UNK
     Dates: start: 20210802, end: 20210806
  22. CRESTOR [Concomitant]
     Active Substance: ROSUVASTATIN CALCIUM
     Dosage: UNK
     Dates: start: 2021
  23. LIPEGFILGRASTIM [Concomitant]
     Active Substance: LIPEGFILGRASTIM
     Dosage: UNK
     Dates: start: 20210806, end: 20210806
  24. PANTOMED D [Concomitant]
     Dosage: UNK
  25. LITICAN [ALIZAPRIDE HYDROCHLORIDE] [Concomitant]
     Dosage: UNK
     Dates: start: 20210803, end: 20210803
  26. ENOXAPARIN SODIUM [Concomitant]
     Active Substance: ENOXAPARIN SODIUM
     Dosage: UNK
     Dates: start: 20210726
  27. CHOLECALCIFEROL [Concomitant]
     Active Substance: CHOLECALCIFEROL
     Dosage: UNK
     Dates: start: 2021
  28. ACYCLOVIR [Concomitant]
     Active Substance: ACYCLOVIR
     Dosage: UNK
     Dates: start: 20210803
  29. ONDANSETRON HYDROCHLORIDE [Concomitant]
     Active Substance: ONDANSETRON HYDROCHLORIDE
     Dosage: UNK
     Dates: start: 20210804, end: 20210807
  30. SULFAMETHOXAZOLE AND TRIMETHOPRIM [Concomitant]
     Active Substance: SULFAMETHOXAZOLE\TRIMETHOPRIM
     Dosage: UNK
     Dates: start: 20210804
  31. ASPIRIN [Concomitant]
     Active Substance: ASPIRIN
     Dosage: UNK
     Dates: start: 2021

REACTIONS (2)
  - Cytokine release syndrome [Recovered/Resolved]
  - Febrile neutropenia [Recovered/Resolved]

NARRATIVE: CASE EVENT DATE: 20210811
